FAERS Safety Report 21768188 (Version 1)
Quarter: 2022Q4

REPORT INFORMATION
  Report Type: Other
  Country: None (occurrence: NO)
  Receive Date: 20221222
  Receipt Date: 20221222
  Transmission Date: 20230113
  Serious: Yes (Hospitalization)
  Sender: FDA-Public Use
  Company Number: NO-B.Braun Medical Inc.-2136098

PATIENT
  Sex: Female

DRUGS (1)
  1. SODIUM CHLORIDE FOR IRRIGATION [Suspect]
     Active Substance: SODIUM CHLORIDE

REACTIONS (1)
  - Hypernatraemia [Recovered/Resolved]
